FAERS Safety Report 6663122-0 (Version None)
Quarter: 2010Q2

REPORT INFORMATION
  Report Type: 
  Country: None (occurrence: None)
  Receive Date: 20100401
  Receipt Date: 20100330
  Transmission Date: 20101027
  Serious: Yes (Hospitalization)
  Sender: FDA-Public Use
  Company Number: US-SANOFI-AVENTIS-2010SA011533

PATIENT
  Age: 97 Year
  Sex: Female

DRUGS (3)
  1. MULTAQ [Suspect]
     Route: 065
  2. DIGOXIN [Concomitant]
     Route: 065
  3. BETA BLOCKING AGENTS [Concomitant]

REACTIONS (3)
  - DYSPNOEA [None]
  - PRESYNCOPE [None]
  - VENTRICULAR TACHYCARDIA [None]
